FAERS Safety Report 17416009 (Version 1)
Quarter: 2020Q1

REPORT INFORMATION
  Report Type: Spontaneous
  Country: TR (occurrence: TR)
  Receive Date: 20200213
  Receipt Date: 20200213
  Transmission Date: 20200409
  Serious: Yes (Life-Threatening)
  Sender: FDA-Public Use
  Company Number: TR-ASTRAZENECA-2018SF42909

PATIENT
  Age: 72 Year
  Sex: Female

DRUGS (3)
  1. DAPAGLIFLOZIN. [Suspect]
     Active Substance: DAPAGLIFLOZIN
     Indication: TYPE 2 DIABETES MELLITUS
     Route: 048
  2. GLUKOFEN [Concomitant]
     Active Substance: METFORMIN HYDROCHLORIDE
     Dosage: 1000
  3. EUTHYROX [Concomitant]
     Active Substance: LEVOTHYROXINE SODIUM

REACTIONS (1)
  - Euglycaemic diabetic ketoacidosis [Recovered/Resolved]
